FAERS Safety Report 8451784-7 (Version None)
Quarter: 2012Q2

REPORT INFORMATION
  Report Type: 
  Country: None (occurrence: None)
  Receive Date: 20120620
  Receipt Date: 20120615
  Transmission Date: 20120825
  Serious: Yes (Death)
  Sender: FDA-Public Use
  Company Number: DE-ROCHE-1079596

PATIENT
  Age: 20 Year
  Sex: Male

DRUGS (6)
  1. SINGULAIR [Concomitant]
     Route: 065
  2. ALBUTEROL SULFATE AUTOHALER [Concomitant]
     Route: 065
  3. ENALAPRIL MALEATE [Concomitant]
     Route: 065
  4. XOLAIR [Suspect]
     Indication: ASTHMA
     Route: 058
     Dates: start: 20100601
  5. FLUTICASONE PROPIONATE [Concomitant]
     Route: 065
  6. FORMOTEROL FUMARATE [Concomitant]
     Route: 065

REACTIONS (2)
  - RIGHT VENTRICULAR FAILURE [None]
  - STATUS ASTHMATICUS [None]
